FAERS Safety Report 9190806 (Version 2)
Quarter: 2014Q2

REPORT INFORMATION
  Report Type: Report from Study
  Country: MX (occurrence: MX)
  Receive Date: 20130326
  Receipt Date: 20140607
  Transmission Date: 20141212
  Serious: Yes (Death, Hospitalization)
  Sender: FDA-Public Use
  Company Number: PHHY2013MX029181

PATIENT
  Age: 83 Year
  Sex: Male

DRUGS (1)
  1. ONBREZ [Suspect]
     Indication: CHRONIC OBSTRUCTIVE PULMONARY DISEASE
     Dosage: 150 UG, DAILY
     Route: 055
     Dates: start: 2011, end: 20130308

REACTIONS (6)
  - Chronic obstructive pulmonary disease [Fatal]
  - Dyspnoea [Fatal]
  - Decreased appetite [Fatal]
  - Respiratory failure [Fatal]
  - Cardiac failure [Fatal]
  - Hip fracture [Unknown]
